FAERS Safety Report 17506564 (Version 1)
Quarter: 2020Q1

REPORT INFORMATION
  Report Type: Spontaneous
  Country: US (occurrence: US)
  Receive Date: 20200306
  Receipt Date: 20200306
  Transmission Date: 20200409
  Serious: Yes (Other)
  Sender: FDA-Public Use
  Company Number: US-BTG-202000033

PATIENT
  Age: 66 Year
  Sex: Female

DRUGS (1)
  1. VARITHENA [Suspect]
     Active Substance: POLIDOCANOL
     Indication: VARICOSE VEIN
     Dosage: UNKNOWN
     Route: 042

REACTIONS (6)
  - Systolic dysfunction [Unknown]
  - Stress cardiomyopathy [Unknown]
  - Sinus bradycardia [Unknown]
  - Diastolic dysfunction [Unknown]
  - Ventricular hypokinesia [Unknown]
  - Electrocardiogram T wave abnormal [Unknown]
